FAERS Safety Report 4773042-4 (Version None)
Quarter: 2005Q3

REPORT INFORMATION
  Report Type: 
  Country: None (occurrence: None)
  Receive Date: 20050916
  Receipt Date: 20050908
  Transmission Date: 20060218
  Serious: Yes (Hospitalization)
  Sender: FDA-Public Use
  Company Number: US-2005-018617

PATIENT
  Sex: Female

DRUGS (1)
  1. BETASERON [Suspect]
     Indication: MULTIPLE SCLEROSIS
     Dosage: MIU, SUBCUTANEOUS
     Route: 058
     Dates: end: 19990101

REACTIONS (2)
  - INJECTION SITE NECROSIS [None]
  - INJECTION SITE ULCER [None]
